FAERS Safety Report 9467356 (Version 2)
Quarter: 2013Q4

REPORT INFORMATION
  Report Type: Spontaneous
  Country: US (occurrence: US)
  Receive Date: 20130821
  Receipt Date: 20131001
  Transmission Date: 20140711
  Serious: Yes (Hospitalization)
  Sender: FDA-Public Use
  Company Number: US-BRISTOL-MYERS SQUIBB COMPANY-19180694

PATIENT
  Age: 65 Year
  Sex: Female

DRUGS (8)
  1. SPRYCEL [Suspect]
     Indication: CHRONIC MYELOID LEUKAEMIA
     Dates: start: 20130210
  2. SULFAMETHOXAZOLE [Concomitant]
  3. SIMVASTATIN [Concomitant]
  4. DICLOFENAC [Concomitant]
  5. VITAMIN B12 [Concomitant]
  6. ALENDRONATE SODIUM [Concomitant]
  7. MULTIVITAMIN [Concomitant]
  8. VITAMIN C [Concomitant]

REACTIONS (1)
  - Chylothorax [Unknown]
